FAERS Safety Report 12991213 (Version 2)
Quarter: 2016Q4

REPORT INFORMATION
  Report Type: Spontaneous
  Country: US (occurrence: US)
  Receive Date: 20161201
  Receipt Date: 20161213
  Transmission Date: 20170207
  Serious: No
  Sender: FDA-Public Use
  Company Number: US-ELI_LILLY_AND_COMPANY-US201607007875

PATIENT
  Sex: Male
  Weight: 119.7 kg

DRUGS (1)
  1. CYMBALTA [Suspect]
     Active Substance: DULOXETINE HYDROCHLORIDE
     Indication: PRODUCT USED FOR UNKNOWN INDICATION
     Dosage: UNK, UNKNOWN
     Route: 065
     Dates: end: 20141120

REACTIONS (16)
  - Dysphoria [Unknown]
  - Drug withdrawal syndrome [Unknown]
  - Headache [Unknown]
  - Fatigue [Unknown]
  - Irritability [Unknown]
  - Insomnia [Unknown]
  - Agitation [Unknown]
  - Tinnitus [Unknown]
  - Affect lability [Unknown]
  - Anxiety [Unknown]
  - Vertigo [Unknown]
  - Nausea [Unknown]
  - Hyperhidrosis [Unknown]
  - Malaise [Unknown]
  - Diarrhoea [Unknown]
  - Dizziness [Unknown]
